FAERS Safety Report 9995434 (Version 1)
Quarter: 2014Q1

REPORT INFORMATION
  Report Type: Spontaneous
  Country: FR (occurrence: FR)
  Receive Date: 20140311
  Receipt Date: 20140311
  Transmission Date: 20141002
  Serious: Yes (Life-Threatening)
  Sender: FDA-Public Use
  Company Number: FR-ABBVIE-14P-056-1211101-00

PATIENT
  Age: 44 Year
  Sex: Male

DRUGS (6)
  1. DEPAKINE [Suspect]
     Indication: BIPOLAR DISORDER
     Route: 048
  2. DEPAKINE [Suspect]
     Route: 048
     Dates: start: 20131105, end: 20131105
  3. DOLIPRANE [Suspect]
     Indication: INTENTIONAL OVERDOSE
     Route: 048
     Dates: start: 20131105, end: 20131105
  4. RISPERDAL [Suspect]
     Indication: BIPOLAR DISORDER
     Route: 048
  5. RISPERDAL [Suspect]
     Route: 048
     Dates: start: 20131105, end: 20131105
  6. CITALOPRAM (CITALOPRAM) [Concomitant]
     Indication: PRODUCT USED FOR UNKNOWN INDICATION

REACTIONS (2)
  - Coma scale abnormal [Recovered/Resolved]
  - Coma [Recovered/Resolved]
